FAERS Safety Report 22713444 (Version 5)
Quarter: 2024Q4

REPORT INFORMATION
  Report Type: Spontaneous
  Country: FR (occurrence: FR)
  Receive Date: 20230717
  Receipt Date: 20241009
  Transmission Date: 20250115
  Serious: Yes (Hospitalization, Other)
  Sender: MYLAN
  Company Number: FR-PFIZER INC-202300232462

PATIENT
  Age: 40 Year
  Sex: Female

DRUGS (13)
  1. POSACONAZOLE [Interacting]
     Active Substance: POSACONAZOLE
     Indication: Scedosporium infection
     Dosage: 200 MILLIGRAM,QD,DAILY
     Route: 065
  2. POSACONAZOLE [Interacting]
     Active Substance: POSACONAZOLE
     Indication: Fungal infection
  3. POSACONAZOLE [Interacting]
     Active Substance: POSACONAZOLE
     Indication: Fungal skin infection
  4. VORICONAZOLE [Suspect]
     Active Substance: VORICONAZOLE
     Indication: Fungal infection
     Dosage: 400 MILLIGRAM,QD,200MG 2X/DAY, 200 MG, BID
     Route: 048
  5. VORICONAZOLE [Suspect]
     Active Substance: VORICONAZOLE
     Indication: Scedosporium infection
     Dosage: 200 MILLIGRAM, Q5D
     Route: 048
  6. VORICONAZOLE [Suspect]
     Active Substance: VORICONAZOLE
     Indication: Fungal skin infection
  7. TACROLIMUS [Interacting]
     Active Substance: TACROLIMUS
     Indication: Prophylaxis against transplant rejection
     Dosage: 2 MILLIGRAM, QD
     Route: 065
  8. TACROLIMUS [Interacting]
     Active Substance: TACROLIMUS
     Indication: Skin infection
  9. TACROLIMUS [Interacting]
     Active Substance: TACROLIMUS
     Indication: Scedosporium infection
  10. PREDNISONE [Suspect]
     Active Substance: PREDNISONE
     Indication: Prophylaxis against transplant rejection
     Dosage: 5 MILLIGRAM, QD
     Route: 065
  11. MYCOPHENOLIC ACID [Suspect]
     Active Substance: MYCOPHENOLIC ACID
     Indication: Prophylaxis against transplant rejection
     Dosage: 360 MILLIGRAM, BID
     Route: 065
  12. CASPOFUNGIN [Concomitant]
     Active Substance: CASPOFUNGIN
     Dosage: 50 MILLIGRAM, QD
     Route: 042
  13. POSACONAZOLE [Concomitant]
     Active Substance: POSACONAZOLE
     Dosage: IN EVERY 6 MONTHS,DAILY WITH AN OCCLUSIVE PATCH)
     Route: 061

REACTIONS (9)
  - Renal impairment [Unknown]
  - Proteinuria [Unknown]
  - Hepatotoxicity [Unknown]
  - Hepatic function abnormal [Unknown]
  - Alanine aminotransferase increased [Unknown]
  - Drug interaction [Unknown]
  - Therapeutic product effect incomplete [Unknown]
  - Drug ineffective [Unknown]
  - Blood creatinine increased [Unknown]
